FAERS Safety Report 19522594 (Version 2)
Quarter: 2021Q3

REPORT INFORMATION
  Report Type: Spontaneous
  Country: US (occurrence: US)
  Receive Date: 20210713
  Receipt Date: 20210908
  Transmission Date: 20211014
  Serious: No
  Sender: FDA-Public Use
  Company Number: US-ASTRAZENECA-2021A572781

PATIENT
  Sex: Male
  Weight: 78 kg

DRUGS (1)
  1. BYDUREON BCISE [Suspect]
     Active Substance: EXENATIDE
     Indication: BLOOD GLUCOSE ABNORMAL
     Route: 065

REACTIONS (5)
  - Product dose omission issue [Unknown]
  - Injection site mass [Unknown]
  - Exercise lack of [Unknown]
  - Device issue [Unknown]
  - Ill-defined disorder [Unknown]
